FAERS Safety Report 23549566 (Version 1)
Quarter: 2024Q1

REPORT INFORMATION
  Report Type: Report from Study
  Country: HN (occurrence: HN)
  Receive Date: 20240221
  Receipt Date: 20240221
  Transmission Date: 20240410
  Serious: Yes (Life-Threatening, Disabling)
  Sender: FDA-Public Use
  Company Number: HN-002147023-NVSC2024HN035926

PATIENT
  Sex: Female
  Weight: 65.76 kg

DRUGS (2)
  1. EXFORGE HCT [Suspect]
     Active Substance: AMLODIPINE BESYLATE\HYDROCHLOROTHIAZIDE\VALSARTAN
     Indication: Hypertension
     Dosage: 1 X 5/160/ 12.5 MG QD
     Route: 048
     Dates: end: 202312
  2. EXFORGE HCT [Suspect]
     Active Substance: AMLODIPINE BESYLATE\HYDROCHLOROTHIAZIDE\VALSARTAN
     Dosage: 1 X 5/160/ 25 MG QD
     Route: 048
     Dates: start: 202312

REACTIONS (12)
  - Blood triglycerides increased [Unknown]
  - Blood triglycerides decreased [Unknown]
  - Anxiety [Unknown]
  - Panic attack [Unknown]
  - Stress [Unknown]
  - Dysmenorrhoea [Unknown]
  - Malaise [Unknown]
  - Headache [Unknown]
  - Dizziness [Unknown]
  - Migraine [Unknown]
  - Abdominal pain [Unknown]
  - Weight fluctuation [Unknown]

NARRATIVE: CASE EVENT DATE: 20220101
